FAERS Safety Report 19226513 (Version 1)
Quarter: 2021Q2

REPORT INFORMATION
  Report Type: Spontaneous
  Country: US (occurrence: US)
  Receive Date: 20210505
  Receipt Date: 20210505
  Transmission Date: 20210717
  Serious: No
  Sender: FDA-Public Use
  Company Number: US-ROCHE-2564489

PATIENT
  Sex: Female

DRUGS (15)
  1. IRON [Concomitant]
     Active Substance: IRON
  2. PROMETHAZINE [Concomitant]
     Active Substance: PROMETHAZINE HYDROCHLORIDE
  3. ELIDEL [Concomitant]
     Active Substance: PIMECROLIMUS
     Dosage: CRE 1%
  4. ASPIRIN. [Concomitant]
     Active Substance: ASPIRIN
  5. SYNTHROID [Concomitant]
     Active Substance: LEVOTHYROXINE SODIUM
  6. ESBRIET [Suspect]
     Active Substance: PIRFENIDONE
     Indication: IDIOPATHIC PULMONARY FIBROSIS
     Dosage: 3 CAPSULES BY MOUTH 3 TIMES DAILY
     Route: 048
     Dates: start: 20180221
  7. TRIAMTERENE. [Concomitant]
     Active Substance: TRIAMTERENE
     Dosage: 37.5?25 M
  8. VITAMIN C [Concomitant]
     Active Substance: ASCORBIC ACID
  9. LEXAPRO [Concomitant]
     Active Substance: ESCITALOPRAM OXALATE
  10. GABAPENTIN. [Concomitant]
     Active Substance: GABAPENTIN
  11. SULINDAC. [Concomitant]
     Active Substance: SULINDAC
  12. ALBUTEROL SULFATE. [Concomitant]
     Active Substance: ALBUTEROL SULFATE
  13. ATENOLOL. [Concomitant]
     Active Substance: ATENOLOL
  14. TYLENOL [Concomitant]
     Active Substance: ACETAMINOPHEN
  15. VITAMIN D3 [Concomitant]
     Active Substance: CHOLECALCIFEROL
     Dosage: 10000UNIT

REACTIONS (3)
  - Tinnitus [Not Recovered/Not Resolved]
  - Sinusitis [Not Recovered/Not Resolved]
  - Excessive cerumen production [Not Recovered/Not Resolved]
